FAERS Safety Report 14392138 (Version 2)
Quarter: 2018Q1

REPORT INFORMATION
  Report Type: Spontaneous
  Country: FR (occurrence: FR)
  Receive Date: 20180116
  Receipt Date: 20180213
  Transmission Date: 20180509
  Serious: Yes (Hospitalization)
  Sender: FDA-Public Use
  Company Number: FR-ROCHE-2054851

PATIENT
  Age: 17 Year
  Sex: Female

DRUGS (4)
  1. KEPPRA [Suspect]
     Active Substance: LEVETIRACETAM
     Indication: EPILEPSY
     Dosage: 5ML IN THE MORNING AND 7.5ML IN THE EVENING
     Route: 048
     Dates: start: 2014
  2. LAROXYL [Suspect]
     Active Substance: AMITRIPTYLINE HYDROCHLORIDE
     Indication: ENCEPHALOPATHY
     Dosage: UNIT DOSE: 10 [DRP], FORM STRENGTH 40MG/ML
     Route: 048
     Dates: start: 2014
  3. RIVOTRIL [Suspect]
     Active Substance: CLONAZEPAM
     Indication: ENCEPHALOPATHY
     Dosage: UNIT DOSE: 15 [DRP]
     Route: 048
     Dates: start: 2012
  4. MELATONINE [Suspect]
     Active Substance: MELATONIN
     Indication: PRODUCT USED FOR UNKNOWN INDICATION
     Route: 048
     Dates: start: 2014

REACTIONS (1)
  - Pancreatitis acute [Not Recovered/Not Resolved]

NARRATIVE: CASE EVENT DATE: 20171208
